FAERS Safety Report 15197265 (Version 1)
Quarter: 2018Q3

REPORT INFORMATION
  Report Type: Report from Study
  Country: BR (occurrence: BR)
  Receive Date: 20180725
  Receipt Date: 20180725
  Transmission Date: 20181010
  Serious: Yes (Other)
  Sender: FDA-Public Use
  Company Number: PHHY2013BR117901

PATIENT
  Age: 59 Year
  Sex: Male
  Weight: 82 kg

DRUGS (8)
  1. XOLAIR [Suspect]
     Active Substance: OMALIZUMAB
     Dosage: UNK
     Route: 058
     Dates: start: 201803
  2. XOLAIR [Suspect]
     Active Substance: OMALIZUMAB
     Dosage: 3 DF, EVERY 15 DAYS
     Route: 058
  3. SERETIDE [Concomitant]
     Active Substance: FLUTICASONE PROPIONATE\SALMETEROL XINAFOATE
     Indication: SENSITIVITY TO WEATHER CHANGE
     Dosage: UNK
     Route: 065
  4. FORMOTEROL [Concomitant]
     Active Substance: FORMOTEROL
     Indication: PRODUCT USED FOR UNKNOWN INDICATION
     Dosage: UNK
     Route: 065
  5. SERETIDE [Concomitant]
     Active Substance: FLUTICASONE PROPIONATE\SALMETEROL XINAFOATE
     Indication: ASTHMA
     Dosage: 50 UG, QD (2 PUFFS A DAY)
     Route: 055
  6. FORASEQ [Suspect]
     Active Substance: BUDESONIDE\FORMOTEROL FUMARATE
     Indication: ASTHMA
     Dosage: 2 PUFFS, QD
     Route: 055
  7. XOLAIR [Suspect]
     Active Substance: OMALIZUMAB
     Indication: ASTHMA
     Dosage: 3 DF, (3 AMPOULES?450 MG), EVERY 15 DAYS (STARTED SINCE 20 YEARS AGO)
     Route: 058
  8. XOLAIR [Suspect]
     Active Substance: OMALIZUMAB
     Indication: BRONCHITIS
     Dosage: UNK
     Route: 058
     Dates: start: 20131004

REACTIONS (12)
  - Drug dependence [Recovered/Resolved]
  - Accident [Recovering/Resolving]
  - Pelvic fracture [Recovering/Resolving]
  - Pyrexia [Not Recovered/Not Resolved]
  - Renal disorder [Recovered/Resolved]
  - Swelling [Recovered/Resolved]
  - Catarrh [Recovered/Resolved]
  - Rhinorrhoea [Not Recovered/Not Resolved]
  - Infection [Recovered/Resolved]
  - Asthma [Recovered/Resolved]
  - Influenza [Recovered/Resolved]
  - Nasopharyngitis [Not Recovered/Not Resolved]

NARRATIVE: CASE EVENT DATE: 201804
